FAERS Safety Report 4476466-8 (Version None)
Quarter: 2004Q4

REPORT INFORMATION
  Report Type: 
  Country: None (occurrence: None)
  Receive Date: 20041014
  Receipt Date: 20040929
  Transmission Date: 20050328
  Serious: Yes (Other)
  Sender: FDA-Public Use
  Company Number: K200401500

PATIENT
  Age: 20 Year
  Sex: Male
  Weight: 70 kg

DRUGS (2)
  1. EPINEPHRINE [Suspect]
     Indication: ACCIDENTAL EXPOSURE
     Dosage: 0.75 MG, SINGLE, INTRAVENOUS
     Route: 042
  2. RINGER-LACTATE SOLUTION   DELTA PHARMA   (POTASSIUM CHLORIDE, CALCIUM [Concomitant]

REACTIONS (12)
  - ACCIDENTAL EXPOSURE [None]
  - ARTERIOSPASM CORONARY [None]
  - BLOOD PRESSURE INCREASED [None]
  - CARDIAC FAILURE [None]
  - EJECTION FRACTION DECREASED [None]
  - HYPOTENSION [None]
  - IATROGENIC INJURY [None]
  - MEDICATION ERROR [None]
  - MYOCARDIAL INFARCTION [None]
  - SINUS BRADYCARDIA [None]
  - SINUS TACHYCARDIA [None]
  - VENTRICULAR DYSFUNCTION [None]
